FAERS Safety Report 8713023 (Version 2)
Quarter: 2013Q1

REPORT INFORMATION
  Report Type: Spontaneous
  Country: US (occurrence: None)
  Receive Date: 20120723
  Receipt Date: 20121120
  Transmission Date: 20140127
  Serious: Yes (Other)
  Sender: FDA-Public Use
  Company Number: EUS-2012-00477

PATIENT
  Age: 10 Year
  Sex: Female

DRUGS (6)
  1. ASPARAGINASE [Suspect]
     Indication: ACUTE LYMPHOCYTIC LEUKAEMIA
     Dosage: OVER ONE WEEK
  2. ASPARAGINASE [Suspect]
     Indication: ACUTE LYMPHOCYTIC LEUKAEMIA
     Dosage: OVER ONE WEEK
  3. PREDNISONE  (PREDNISONE) [Suspect]
     Indication: PRODUCT USED FOR UNKNOWN INDICATION
     Dosage: TAPERING DOSE OF 180MG/M2 OVER ONE WEEK
  4. DAUNORUBICIN (DAUNORUBICIN) (DAUNORUBICIN ) [Concomitant]
  5. CYCLOPHOSPHAMIDE (CYCLOPHOSPHAMIDE) (CYCLOPHOSPHAMIDE) (CYCLOPHOSPHAMIDE) [Concomitant]
  6. VINCRISTINE (VINCRISTINE) (VINCRISTINE) [Concomitant]

REACTIONS (2)
  - Hyperlipidaemia [None]
  - Lipaemia retinalis [None]
